FAERS Safety Report 7508822-5 (Version None)
Quarter: 2011Q2

REPORT INFORMATION
  Report Type: 
  Country: None (occurrence: None)
  Receive Date: 20110527
  Receipt Date: 20110513
  Transmission Date: 20111010
  Serious: Yes (Other)
  Sender: FDA-Public Use
  Company Number: GB-MYLANLABS-2011S1010284

PATIENT
  Age: 25 Year
  Sex: Female
  Weight: 64 kg

DRUGS (2)
  1. SEROQUEL [Suspect]
     Indication: AFFECTIVE DISORDER
     Route: 048
     Dates: start: 20101221, end: 20110329
  2. SERTRALINE HYDROCHLORIDE [Suspect]
     Indication: AFFECTIVE DISORDER
     Route: 048
     Dates: start: 20101222, end: 20110329

REACTIONS (3)
  - ABORTION SPONTANEOUS [None]
  - ECTOPIC PREGNANCY [None]
  - DRUG EXPOSURE DURING PREGNANCY [None]
